FAERS Safety Report 10167546 (Version 1)
Quarter: 2014Q2

REPORT INFORMATION
  Report Type: Spontaneous
  Country: US (occurrence: US)
  Receive Date: 20140512
  Receipt Date: 20140512
  Transmission Date: 20141212
  Serious: No
  Sender: FDA-Public Use
  Company Number: US-BAYER-2014-069353

PATIENT
  Age: 86 Year
  Sex: Female
  Weight: 72.56 kg

DRUGS (5)
  1. ALEVE CAPLET [Suspect]
     Indication: ARTHRITIS
     Dosage: 1 DF, ONCE
     Route: 048
     Dates: start: 20140507, end: 20140507
  2. ANASTROZOLE [Concomitant]
  3. ZOCOR [Concomitant]
  4. DIOVAN [Concomitant]
  5. TYLENOL [PARACETAMOL] [Concomitant]
     Indication: ARTHRITIS
     Dosage: UNK
     Dates: start: 20140507

REACTIONS (1)
  - Drug ineffective [None]
